FAERS Safety Report 13371104 (Version 1)
Quarter: 2017Q1

REPORT INFORMATION
  Report Type: Spontaneous
  Country: US (occurrence: US)
  Receive Date: 20170324
  Receipt Date: 20170324
  Transmission Date: 20170429
  Serious: No
  Sender: FDA-Public Use
  Company Number: US-WARNER CHILCOTT-2016-000976

PATIENT
  Age: 66 Year
  Sex: Female

DRUGS (1)
  1. ESTRACE [Suspect]
     Active Substance: ESTRADIOL
     Dosage: MORE THAN 1 GRAM TWICE WEEKLY
     Route: 067
     Dates: start: 20160425

REACTIONS (4)
  - Feeling abnormal [Not Recovered/Not Resolved]
  - Drug administered in wrong device [Unknown]
  - Nausea [Not Recovered/Not Resolved]
  - Intentional product misuse [Unknown]

NARRATIVE: CASE EVENT DATE: 20160425
